FAERS Safety Report 9396746 (Version 1)
Quarter: 2013Q3

REPORT INFORMATION
  Report Type: Spontaneous
  Country: FR (occurrence: FR)
  Receive Date: 20130712
  Receipt Date: 20130712
  Transmission Date: 20140515
  Serious: Yes (Hospitalization)
  Sender: FDA-Public Use
  Company Number: FR-AMGEN-FRASP2013047770

PATIENT
  Age: 58 Year
  Sex: Male

DRUGS (6)
  1. ARANESP [Suspect]
     Indication: ANAEMIA
     Dosage: UNK
     Dates: start: 20130423, end: 20130612
  2. COPEGUS [Suspect]
     Indication: CHRONIC HEPATITIS
     Dosage: 1000 MG, QD (1000 TAKEN AS 400 IN AM AND 600 IN PM)
     Route: 048
     Dates: start: 20130318, end: 20130612
  3. PEGASYS [Suspect]
     Indication: CHRONIC HEPATITIS
     Dosage: 180 MUG, QWK
     Route: 058
     Dates: start: 20130323, end: 20130610
  4. INCIVO [Suspect]
     Indication: CHRONIC HEPATITIS
     Dosage: 750 MG, TID
  5. POLARAMINE [Concomitant]
     Indication: RASH
     Dosage: UNK
     Route: 048
     Dates: start: 20130513, end: 20130518
  6. XYZALL [Concomitant]
     Indication: RASH
     Dosage: UNK
     Route: 048
     Dates: start: 20130513, end: 20130518

REACTIONS (1)
  - Drug reaction with eosinophilia and systemic symptoms [Not Recovered/Not Resolved]
